FAERS Safety Report 9775591 (Version 1)
Quarter: 2013Q4

REPORT INFORMATION
  Report Type: Spontaneous
  Country: US (occurrence: None)
  Receive Date: 20131218
  Receipt Date: 20131218
  Transmission Date: 20140711
  Serious: Yes (Death)
  Sender: FDA-Public Use
  Company Number: USW201312-000154

PATIENT
  Age: 81 Year
  Sex: Male

DRUGS (1)
  1. APOKYN (APOMORPHINE HYDROCHLORIDE) (APOMORPHINE HYDROCHLORIDE) [Suspect]
     Indication: PARKINSON^S DISEASE
     Dates: start: 2010

REACTIONS (1)
  - Death [None]
